FAERS Safety Report 6862666-6 (Version None)
Quarter: 2010Q3

REPORT INFORMATION
  Report Type: 
  Country: None (occurrence: None)
  Receive Date: 20100719
  Receipt Date: 20100701
  Transmission Date: 20110219
  Serious: Yes (Life-Threatening)
  Sender: FDA-Public Use
  Company Number: 1000014073

PATIENT
  Age: 69 Year
  Sex: Female

DRUGS (4)
  1. MILNACIPRAN (MILNACIPRAN HYDROCHLORIDE) (TABLETS) [Suspect]
     Indication: DEPRESSION
     Dosage: 100 MG (100 MG, 1 IN 1 D),ORAL
     Route: 048
     Dates: start: 20080704, end: 20100422
  2. ZOLPIDEM TARTRATE [Concomitant]
  3. LORMETAZEPAM [Concomitant]
  4. LORAZEPAM [Concomitant]

REACTIONS (4)
  - CARDIAC FAILURE [None]
  - NO THERAPEUTIC RESPONSE [None]
  - RENAL FAILURE ACUTE [None]
  - TACHYARRHYTHMIA [None]
